FAERS Safety Report 17399387 (Version 4)
Quarter: 2020Q1

REPORT INFORMATION
  Report Type: Spontaneous
  Country: NL (occurrence: NL)
  Receive Date: 20200211
  Receipt Date: 20200225
  Transmission Date: 20200409
  Serious: Yes (Death)
  Sender: FDA-Public Use
  Company Number: NL-ROCHE-2537509

PATIENT
  Age: 70 Year
  Sex: Male
  Weight: 62 kg

DRUGS (1)
  1. HEMLIBRA [Suspect]
     Active Substance: EMICIZUMAB-KXWH
     Indication: HAEMOPHILIA
     Route: 058
     Dates: start: 20190710, end: 20200119

REACTIONS (2)
  - Decreased appetite [Fatal]
  - Mental fatigue [Fatal]

NARRATIVE: CASE EVENT DATE: 201912
